FAERS Safety Report 20166842 (Version 2)
Quarter: 2022Q1

REPORT INFORMATION
  Report Type: Spontaneous
  Country: US (occurrence: US)
  Receive Date: 20211209
  Receipt Date: 20220106
  Transmission Date: 20220423
  Serious: No
  Sender: FDA-Public Use
  Company Number: US-PFIZER INC-202101558287

PATIENT
  Age: 5 Year
  Sex: Male
  Weight: 15.42 kg

DRUGS (1)
  1. GENOTROPIN [Suspect]
     Active Substance: SOMATROPIN
     Indication: Blood growth hormone abnormal
     Dosage: 0.5 MG, 1X/DAY

REACTIONS (2)
  - Drug dose omission by device [Not Recovered/Not Resolved]
  - Device mechanical issue [Not Recovered/Not Resolved]

NARRATIVE: CASE EVENT DATE: 20211001
